FAERS Safety Report 5905899-5 (Version None)
Quarter: 2008Q4

REPORT INFORMATION
  Report Type: 
  Country: None (occurrence: None)
  Receive Date: 20081002
  Receipt Date: 20080930
  Transmission Date: 20090506
  Serious: Yes (Death)
  Sender: FDA-Public Use
  Company Number: US-ASTRAZENECA-2008UW20958

PATIENT
  Age: 84 Year
  Sex: Male

DRUGS (2)
  1. CASODEX [Suspect]
     Dosage: 50MG
     Route: 048
  2. NEXIUM [Concomitant]
     Route: 048

REACTIONS (1)
  - DEATH [None]
